FAERS Safety Report 13761926 (Version 1)
Quarter: 2017Q3

REPORT INFORMATION
  Report Type: Spontaneous
  Country: US (occurrence: US)
  Receive Date: 20170718
  Receipt Date: 20170718
  Transmission Date: 20171127
  Serious: Yes (Hospitalization)
  Sender: FDA-Public Use
  Company Number: US-ASTRAZENECA-2017SE71642

PATIENT
  Age: 30815 Day
  Sex: Female

DRUGS (2)
  1. OMEPRAZOLE. [Suspect]
     Active Substance: OMEPRAZOLE
     Dosage: 20.0MG UNKNOWN
     Route: 048
  2. XALKORI [Concomitant]
     Active Substance: CRIZOTINIB
     Indication: NEOPLASM MALIGNANT
     Dates: start: 20110331

REACTIONS (4)
  - Sleep disorder [Unknown]
  - Dysphagia [Unknown]
  - Throat irritation [Unknown]
  - Malaise [Not Recovered/Not Resolved]

NARRATIVE: CASE EVENT DATE: 20170305
